FAERS Safety Report 5405983-9 (Version None)
Quarter: 2007Q3

REPORT INFORMATION
  Report Type: 
  Country: None (occurrence: None)
  Receive Date: 20070802
  Receipt Date: 20070319
  Transmission Date: 20080115
  Serious: Yes (Hospitalization, Disabling)
  Sender: FDA-Public Use
  Company Number: A03200702157

PATIENT
  Age: 56 Year
  Sex: Female
  Weight: 61.6892 kg

DRUGS (7)
  1. AMBIEN [Suspect]
     Indication: SLEEP DISORDER
     Dosage: ORAL
     Route: 048
     Dates: end: 20070301
  2. SIMVASTATIN [Concomitant]
  3. AMLODIPINE BESYLATE [Concomitant]
  4. ESCITALOPRAM OXALATE [Concomitant]
  5. ESOMEPRAZOLE MAGNESIUM [Concomitant]
  6. TRIAMTERENE [Concomitant]
  7. TEGASEROD [Concomitant]

REACTIONS (20)
  - ALTERED STATE OF CONSCIOUSNESS [None]
  - AMNESIA [None]
  - ARTHRALGIA [None]
  - CONTUSION [None]
  - DIZZINESS [None]
  - FACE INJURY [None]
  - FEELING ABNORMAL [None]
  - FOOT FRACTURE [None]
  - FRACTURE [None]
  - HEAD INJURY [None]
  - HEADACHE [None]
  - INCOHERENT [None]
  - LIMB INJURY [None]
  - LOSS OF CONSCIOUSNESS [None]
  - NECK INJURY [None]
  - PAIN [None]
  - ROAD TRAFFIC ACCIDENT [None]
  - SOMNAMBULISM [None]
  - UTERINE HAEMORRHAGE [None]
  - VERTIGO [None]
